FAERS Safety Report 6857517-X (Version None)
Quarter: 2010Q3

REPORT INFORMATION
  Report Type: 
  Country: None (occurrence: None)
  Receive Date: 20100719
  Receipt Date: 20080127
  Transmission Date: 20110219
  Serious: No
  Sender: FDA-Public Use
  Company Number: US-PFIZER INC-2008008412

PATIENT
  Sex: Male
  Weight: 109.1 kg

DRUGS (8)
  1. CHANTIX [Suspect]
     Indication: SMOKING CESSATION THERAPY
     Route: 048
     Dates: start: 20080119
  2. DEPAKOTE [Concomitant]
  3. STELAZINE [Concomitant]
  4. CLONAZEPAM [Concomitant]
  5. OTHER RESPIRATORY SYSTEM PRODUCTS [Concomitant]
  6. ASPIRIN [Concomitant]
  7. MYLANTA [Concomitant]
  8. ANTIOXIDANTS [Concomitant]

REACTIONS (4)
  - FATIGUE [None]
  - HEADACHE [None]
  - MALAISE [None]
  - NAUSEA [None]
